FAERS Safety Report 19108905 (Version 3)
Quarter: 2021Q2

REPORT INFORMATION
  Report Type: Spontaneous
  Country: US (occurrence: US)
  Receive Date: 20210408
  Receipt Date: 20210417
  Transmission Date: 20210717
  Serious: Yes (Hospitalization, Other)
  Sender: FDA-Public Use
  Company Number: US-ACCORD-222238

PATIENT
  Age: 41 Year
  Sex: Female

DRUGS (1)
  1. CLOZAPINE ACCORD [Suspect]
     Active Substance: CLOZAPINE
     Indication: PRODUCT USED FOR UNKNOWN INDICATION
     Route: 048

REACTIONS (2)
  - Neutropenia [Unknown]
  - Leukaemia [Unknown]

NARRATIVE: CASE EVENT DATE: 20210325
